FAERS Safety Report 11692870 (Version 1)
Quarter: 2015Q4

REPORT INFORMATION
  Report Type: Spontaneous
  Country: GB (occurrence: GB)
  Receive Date: 20151103
  Receipt Date: 20151103
  Transmission Date: 20160304
  Serious: Yes (Other)
  Sender: FDA-Public Use
  Company Number: GB-WATSON-2015-20574

PATIENT
  Age: 66 Year
  Sex: Female

DRUGS (5)
  1. HYDROMORPHONE (UNKNOWN) [Suspect]
     Active Substance: HYDROMORPHONE
     Dosage: REDUCED EVERY 2 OR 3 DAYS TO 24 MG BID
     Route: 048
  2. HYDROMORPHONE (UNKNOWN) [Suspect]
     Active Substance: HYDROMORPHONE
     Indication: BACK PAIN
     Dosage: 48 MG, BID
     Route: 048
  3. PREGABALIN. [Concomitant]
     Active Substance: PREGABALIN
     Indication: PRODUCT USED FOR UNKNOWN INDICATION
     Dosage: 100 MG, BID
     Route: 065
  4. PREGABALIN. [Concomitant]
     Active Substance: PREGABALIN
     Dosage: 75 MG, BID
     Route: 065
  5. HYDROMORPHONE (UNKNOWN) [Suspect]
     Active Substance: HYDROMORPHONE
     Dosage: 24 MG, BID
     Route: 048

REACTIONS (3)
  - Hearing impaired [Recovered/Resolved]
  - Somnolence [Recovered/Resolved]
  - Myoclonus [Recovered/Resolved]
